FAERS Safety Report 4286273-7 (Version None)
Quarter: 2004Q1

REPORT INFORMATION
  Report Type: 
  Country: None (occurrence: None)
  Receive Date: 20040205
  Receipt Date: 20040205
  Transmission Date: 20041129
  Serious: Yes (Other)
  Sender: FDA-Public Use
  Company Number: None

PATIENT
  Age: 67 Year
  Sex: Female
  Weight: 99.7913 kg

DRUGS (1)
  1. AMOXICILLIN AND CLAVULANATE POTASSIUM [Suspect]
     Indication: SINUSITIS
     Dosage: 1 TABLET 2 X DAY
     Dates: start: 20031212, end: 20031214

REACTIONS (2)
  - ABDOMINAL PAIN UPPER [None]
  - PHARMACEUTICAL PRODUCT COMPLAINT [None]
